FAERS Safety Report 4710901-2 (Version None)
Quarter: 2005Q3

REPORT INFORMATION
  Report Type: 
  Country: None (occurrence: None)
  Receive Date: 20050705
  Receipt Date: 20050620
  Transmission Date: 20060218
  Serious: No
  Sender: FDA-Public Use
  Company Number: HQWYE598421JUN05

PATIENT
  Age: 2 Year
  Sex: Male
  Weight: 18.61 kg

DRUGS (4)
  1. REFACTO [Suspect]
     Indication: FACTOR VIII DEFICIENCY
     Dosage: UNSPECIFIED WEIGHT-BASED DOSE, EVERY OTHER DAY
     Dates: start: 20010101
  2. REFACTO [Suspect]
     Indication: PROPHYLAXIS
     Dosage: UNSPECIFIED WEIGHT-BASED DOSE, EVERY OTHER DAY
     Dates: start: 20010101
  3. REFACTO [Suspect]
     Dates: start: 20050601, end: 20050601
  4. REFACTO [Suspect]
     Dosage: 1140 UNITS EVERY OTHER DAY, CALCULATED TO ACHIEVE FACTOR VIII LEVELS OD 128%

REACTIONS (2)
  - ABDOMINAL PAIN LOWER [None]
  - COAGULATION FACTOR VIII LEVEL DECREASED [None]
